FAERS Safety Report 4623977-8 (Version None)
Quarter: 2005Q1

REPORT INFORMATION
  Report Type: 
  Country: None (occurrence: None)
  Receive Date: 20050331
  Receipt Date: 20050318
  Transmission Date: 20050727
  Serious: Yes (Other)
  Sender: FDA-Public Use
  Company Number: JP-ROCHE-399689

PATIENT
  Age: 8 Year
  Sex: Male

DRUGS (3)
  1. TAMIFLU [Suspect]
     Route: 048
     Dates: start: 20050318, end: 20050318
  2. POLARAMINE [Concomitant]
     Route: 048
  3. ATARAX [Concomitant]
     Route: 048

REACTIONS (4)
  - ABNORMAL BEHAVIOUR [None]
  - HALLUCINATION [None]
  - NERVOUSNESS [None]
  - RESTLESSNESS [None]
